FAERS Safety Report 9359496 (Version 1)
Quarter: 2013Q2

REPORT INFORMATION
  Report Type: Spontaneous
  Country: US (occurrence: US)
  Receive Date: 20130620
  Receipt Date: 20130620
  Transmission Date: 20140414
  Serious: No
  Sender: FDA-Public Use
  Company Number: US-009507513-1306USA009040

PATIENT
  Age: 46 Year
  Sex: Female

DRUGS (3)
  1. SAPHRIS [Suspect]
     Indication: BIPOLAR I DISORDER
     Dosage: 10 MG TABLET RAPID DISSOLVE, BID
     Route: 048
     Dates: start: 201302, end: 201305
  2. RESTORIL (TEMAZEPAM) [Concomitant]
  3. KLONOPIN [Concomitant]

REACTIONS (1)
  - Weight increased [Not Recovered/Not Resolved]
